FAERS Safety Report 8521315-1 (Version None)
Quarter: 2012Q3

REPORT INFORMATION
  Report Type: 
  Country: None (occurrence: None)
  Receive Date: 20120719
  Receipt Date: 20120710
  Transmission Date: 20120928
  Serious: Yes (Hospitalization, Other)
  Sender: FDA-Public Use
  Company Number: CA-CELGENEUS-CANAB-11-0069

PATIENT
  Age: 50 Year
  Sex: Female

DRUGS (4)
  1. ANTIBIOTICS [Concomitant]
  2. ANTIBIOTICS [Concomitant]
     Indication: ABDOMINAL PAIN
  3. ABRAXANE [Suspect]
     Dosage: 260 MILLIGRAM/SQ. METER
     Route: 065
  4. ANTIBIOTICS [Concomitant]
     Indication: COUGH

REACTIONS (7)
  - HEPATIC ENZYME INCREASED [None]
  - MUCOSAL INFLAMMATION [None]
  - FEBRILE NEUTROPENIA [None]
  - RASH PRURITIC [None]
  - BLOOD BILIRUBIN INCREASED [None]
  - MALAISE [None]
  - JAUNDICE [None]
